FAERS Safety Report 10568563 (Version 2)
Quarter: 2014Q4

REPORT INFORMATION
  Report Type: Spontaneous
  Country: US (occurrence: US)
  Receive Date: 20141106
  Receipt Date: 20141106
  Transmission Date: 20150529
  Serious: No
  Sender: FDA-Public Use
  Company Number: US-US-EMD SERONO, INC.-7083564

PATIENT
  Sex: Female
  Weight: 61 kg

DRUGS (1)
  1. REBIF [Suspect]
     Active Substance: INTERFERON BETA-1A
     Indication: PRODUCT USED FOR UNKNOWN INDICATION
     Route: 058
     Dates: start: 20051026

REACTIONS (11)
  - Upper limb fracture [Unknown]
  - Nuclear magnetic resonance imaging abnormal [Recovering/Resolving]
  - Haemorrhage [Unknown]
  - Liver function test abnormal [Not Recovered/Not Resolved]
  - Injection site bruising [Not Recovered/Not Resolved]
  - Gait disturbance [Unknown]
  - Injection site discolouration [Not Recovered/Not Resolved]
  - Osteoporosis [Unknown]
  - Hypoaesthesia [Not Recovered/Not Resolved]
  - Fall [Unknown]
  - Injection site pain [Not Recovered/Not Resolved]

NARRATIVE: CASE EVENT DATE: 2008
